FAERS Safety Report 20262797 (Version 2)
Quarter: 2022Q1

REPORT INFORMATION
  Report Type: Spontaneous
  Country: JP (occurrence: JP)
  Receive Date: 20211231
  Receipt Date: 20220203
  Transmission Date: 20220423
  Serious: Yes (Hospitalization, Other)
  Sender: FDA-Public Use
  Company Number: JP-MTPC-MTPC2021-0027349

PATIENT
  Age: 66 Year
  Sex: Female

DRUGS (6)
  1. CANAGLIFLOZIN [Suspect]
     Active Substance: CANAGLIFLOZIN
     Indication: Type 2 diabetes mellitus
     Dosage: 100 MILLIGRAM, QD
     Route: 048
     Dates: start: 20210320, end: 20210403
  2. THYROXINE [Suspect]
     Active Substance: LEVOTHYROXINE
     Route: 065
  3. INSULIN GLARGINE [Concomitant]
     Active Substance: INSULIN GLARGINE
     Indication: Type 2 diabetes mellitus
     Dosage: 6 INTERNATIONAL UNIT, QD
     Route: 051
     Dates: start: 20210226, end: 20210403
  4. METGLUCO [Concomitant]
     Active Substance: METFORMIN HYDROCHLORIDE
     Indication: Type 2 diabetes mellitus
     Dosage: 250 MILLIGRAM, BID
     Route: 048
     Dates: start: 20210317, end: 20210403
  5. HUMALOG [Concomitant]
     Active Substance: INSULIN LISPRO
     Indication: Type 2 diabetes mellitus
     Dosage: 4 INTERNATIONAL UNIT, TID
     Route: 051
     Dates: start: 20210318, end: 20210403
  6. JANUVIA [Concomitant]
     Active Substance: SITAGLIPTIN PHOSPHATE
     Indication: Type 2 diabetes mellitus
     Dosage: 50 MILLIGRAM, QD
     Route: 048
     Dates: end: 20210403

REACTIONS (4)
  - Thyrotoxic crisis [Recovered/Resolved]
  - Diabetic ketoacidosis [Recovered/Resolved]
  - Lactic acidosis [Unknown]
  - Thyroid stimulating hormone-producing pituitary tumour [Unknown]

NARRATIVE: CASE EVENT DATE: 20210403
